FAERS Safety Report 8552834 (Version 2)
Quarter: 2013Q2

REPORT INFORMATION
  Report Type: Spontaneous
  Country: US (occurrence: None)
  Receive Date: 20120327
  Receipt Date: 20120709
  Transmission Date: 20140414
  Serious: Yes (Other)
  Sender: FDA-Public Use
  Company Number: PHEH2009US18622

PATIENT
  Age: 62 Year
  Sex: Female
  Weight: 95.2 kg

DRUGS (11)
  1. GLEEVEC [Suspect]
     Indication: CHRONIC MYELOID LEUKAEMIA
     Dosage: 400 MG, QD, ORAL; 400 MG, DAILY, ORAL; 400 MG, DAILY, ORAL
     Route: 048
     Dates: start: 20060309
  2. ZOFRAN [Concomitant]
  3. CALTRATE 600 + VITAMIN D (CALCIUM CARBONATE, ERGOCALCIFEROL) [Concomitant]
  4. MAGNESIUM [Concomitant]
  5. TOPROL XL [Concomitant]
  6. LABETALOL HYDROCHLORIDE [Concomitant]
  7. COUMADIN [Concomitant]
  8. SYNTHROID [Concomitant]
  9. EDECRIN (ETACRYNIC ACID) [Concomitant]
  10. LOMOTIL (ATROPINE SULFATE, DIPHENOXYLATE HYDROCHLORIDE) [Concomitant]
  11. VITAMIN B12 (CYANOCOBALAMIN) [Concomitant]

REACTIONS (14)
  - ATRIAL FIBRILLATION [None]
  - HEART RATE ABNORMAL [None]
  - MYALGIA [None]
  - RASH [None]
  - FLUID RETENTION [None]
  - DIARRHOEA [None]
  - NAUSEA [None]
  - PARAESTHESIA [None]
  - BLOOD URIC ACID INCREASED [None]
  - MUSCLE RIGIDITY [None]
  - MUSCLE SPASMS [None]
  - BONE PAIN [None]
  - OEDEMA [None]
  - GAIT DISTURBANCE [None]
